FAERS Safety Report 13362470 (Version 1)
Quarter: 2017Q1

REPORT INFORMATION
  Report Type: Spontaneous
  Country: US (occurrence: US)
  Receive Date: 20170323
  Receipt Date: 20170323
  Transmission Date: 20170429
  Serious: No
  Sender: FDA-Public Use
  Company Number: US-PFIZER INC-2017114503

PATIENT
  Age: 82 Year
  Sex: Female
  Weight: 47.17 kg

DRUGS (5)
  1. MECLIZINE [Concomitant]
     Active Substance: MECLIZINE HYDROCHLORIDE
     Indication: DIZZINESS
     Dosage: 25 MG, AS NEEDED
  2. LYRICA [Suspect]
     Active Substance: PREGABALIN
     Indication: NEURALGIA
  3. LYRICA [Suspect]
     Active Substance: PREGABALIN
     Indication: NERVE INJURY
  4. ERYTHROMAX [Concomitant]
     Indication: NEOPLASM MALIGNANT
     Dosage: 1 MG, DAILY
  5. LYRICA [Suspect]
     Active Substance: PREGABALIN
     Indication: NEUROPATHY PERIPHERAL
     Dosage: 50 MG, 3X/DAY
     Route: 048
     Dates: start: 2006

REACTIONS (5)
  - Pain in extremity [Unknown]
  - Dizziness [Recovering/Resolving]
  - Therapeutic response unexpected [Unknown]
  - Intentional product misuse [Unknown]
  - Pre-existing condition improved [Unknown]
